FAERS Safety Report 8043176-X (Version None)
Quarter: 2012Q1

REPORT INFORMATION
  Report Type: 
  Country: None (occurrence: None)
  Receive Date: 20120112
  Receipt Date: 20120110
  Transmission Date: 20120608
  Serious: Yes (Hospitalization)
  Sender: FDA-Public Use
  Company Number: BR-BRISTOL-MYERS SQUIBB COMPANY-16341703

PATIENT
  Age: 66 Year
  Sex: Female

DRUGS (3)
  1. PREDNISONE TAB [Suspect]
     Indication: RENAL TRANSPLANT
  2. BELATACEPT [Suspect]
     Indication: RENAL TRANSPLANT
     Dosage: NO OF COURSES=54
     Route: 042
  3. MYCOPHENOLATE SODIUM [Suspect]
     Indication: RENAL TRANSPLANT
     Dates: start: 20080625

REACTIONS (1)
  - ARTERIOVENOUS FISTULA SITE COMPLICATION [None]
